FAERS Safety Report 8933955 (Version 2)
Quarter: 2013Q1

REPORT INFORMATION
  Report Type: Spontaneous
  Country: FR (occurrence: FR)
  Receive Date: 20121129
  Receipt Date: 20130111
  Transmission Date: 20140127
  Serious: Yes (Hospitalization)
  Sender: FDA-Public Use
  Company Number: FR-B.I. PHARMACEUTICALS,INC./RIDGEFIELD-2012-FF-01717FF

PATIENT
  Sex: Female
  Weight: 45 kg

DRUGS (2)
  1. PRADAXA [Suspect]
     Indication: ATRIAL FIBRILLATION
     Dosage: 220 MG
     Route: 048
     Dates: start: 201209
  2. VITAMIN B12 [Concomitant]
     Indication: PERNICIOUS ANAEMIA

REACTIONS (1)
  - Cerebrovascular accident [Recovered/Resolved with Sequelae]
